FAERS Safety Report 7383842-2 (Version None)
Quarter: 2011Q1

REPORT INFORMATION
  Report Type: 
  Country: None (occurrence: None)
  Receive Date: 20110330
  Receipt Date: 20110321
  Transmission Date: 20110831
  Serious: Yes (Other)
  Sender: FDA-Public Use
  Company Number: DE-ASTRAZENECA-2011SE11783

PATIENT
  Sex: Female

DRUGS (4)
  1. BUPROPION HYDROCHLORIDE [Concomitant]
     Route: 048
  2. SEROQUEL [Suspect]
     Route: 048
  3. ESCITALOPRAM [Concomitant]
     Route: 048
  4. LAMOTRIGINE [Concomitant]
     Route: 048

REACTIONS (2)
  - POLYDIPSIA [None]
  - DIABETES INSIPIDUS [None]
